FAERS Safety Report 7115983-9 (Version None)
Quarter: 2010Q4

REPORT INFORMATION
  Report Type: 
  Country: None (occurrence: None)
  Receive Date: 20101122
  Receipt Date: 20101110
  Transmission Date: 20110411
  Serious: Yes (Hospitalization, Other)
  Sender: FDA-Public Use
  Company Number: JP-SANOFI-AVENTIS-2010SA068482

PATIENT
  Age: 73 Year
  Sex: Female

DRUGS (7)
  1. ELPLAT [Suspect]
     Indication: COLON CANCER METASTATIC
     Route: 041
     Dates: start: 20090610, end: 20090610
  2. ELPLAT [Suspect]
     Route: 041
  3. AVASTIN [Suspect]
     Indication: COLON CANCER METASTATIC
     Route: 042
     Dates: start: 20090610, end: 20090610
  4. AVASTIN [Suspect]
     Route: 042
     Dates: start: 20100101, end: 20100101
  5. FLUOROURACIL [Concomitant]
     Indication: COLON CANCER METASTATIC
     Dates: start: 20090610, end: 20100101
  6. CALCIUM LEVOFOLINATE [Concomitant]
     Dates: start: 20090610, end: 20100101
  7. IRINOTECAN HCL [Concomitant]
     Dates: start: 20090130, end: 20100101

REACTIONS (11)
  - ABDOMINAL WALL ABSCESS [None]
  - ACUTE RESPIRATORY DISTRESS SYNDROME [None]
  - APPENDICITIS [None]
  - ASCITES [None]
  - COLON CANCER METASTATIC [None]
  - DRUG HYPERSENSITIVITY [None]
  - HYPERSENSITIVITY [None]
  - MALIGNANT NEOPLASM PROGRESSION [None]
  - RESPIRATORY FAILURE [None]
  - SUTURE RUPTURE [None]
  - WOUND ABSCESS [None]
